FAERS Safety Report 19121077 (Version 2)
Quarter: 2021Q2

REPORT INFORMATION
  Report Type: Spontaneous
  Country: DE (occurrence: DE)
  Receive Date: 20210412
  Receipt Date: 20210417
  Transmission Date: 20210717
  Serious: Yes (Other)
  Sender: FDA-Public Use
  Company Number: NVSC2021DE061246

PATIENT
  Age: 71 Year
  Sex: Male
  Weight: 76 kg

DRUGS (2)
  1. TAMSULOSIN HYDROCHLORIDE. [Suspect]
     Active Substance: TAMSULOSIN HYDROCHLORIDE
     Indication: MICTURITION URGENCY
     Dosage: 1 DF, QD
     Route: 065
     Dates: start: 20210223
  2. TAMSULOSIN HYDROCHLORIDE. [Suspect]
     Active Substance: TAMSULOSIN HYDROCHLORIDE
     Dosage: UNK
     Route: 065
     Dates: start: 202102

REACTIONS (5)
  - Dry mouth [Not Recovered/Not Resolved]
  - Hypoventilation [Unknown]
  - Nasal congestion [Not Recovered/Not Resolved]
  - Oedema mucosal [Unknown]
  - Nasal dryness [Unknown]

NARRATIVE: CASE EVENT DATE: 20210224
